FAERS Safety Report 17727028 (Version 2)
Quarter: 2021Q2

REPORT INFORMATION
  Report Type: Spontaneous
  Country: US (occurrence: US)
  Receive Date: 20200430
  Receipt Date: 20210518
  Transmission Date: 20210716
  Serious: Yes (Hospitalization, Other)
  Sender: FDA-Public Use
  Company Number: US-ASTRAZENECA-2020SE54657

PATIENT
  Age: 15715 Day
  Sex: Male
  Weight: 106.6 kg

DRUGS (43)
  1. NEXIUM [Suspect]
     Active Substance: ESOMEPRAZOLE MAGNESIUM
     Route: 048
     Dates: start: 199201, end: 201812
  2. PREVACID [Suspect]
     Active Substance: LANSOPRAZOLE
     Route: 065
     Dates: start: 199201, end: 201812
  3. HYDROCORTISONE. [Concomitant]
     Active Substance: HYDROCORTISONE
  4. AMBIEN [Concomitant]
     Active Substance: ZOLPIDEM TARTRATE
  5. DIPHENHYDRAMINE. [Concomitant]
     Active Substance: DIPHENHYDRAMINE
  6. ISORBIDE [Concomitant]
     Active Substance: ISOSORBIDE
  7. LIDOCAINE. [Concomitant]
     Active Substance: LIDOCAINE
  8. FAMOTIDINE. [Concomitant]
     Active Substance: FAMOTIDINE
  9. LIPITOR [Concomitant]
     Active Substance: ATORVASTATIN CALCIUM
  10. FERROUS SULFATE. [Concomitant]
     Active Substance: FERROUS SULFATE
  11. ULTRAM [Concomitant]
     Active Substance: TRAMADOL HYDROCHLORIDE
  12. CALCITRIOL. [Concomitant]
     Active Substance: CALCITRIOL
  13. PREGABALIN. [Concomitant]
     Active Substance: PREGABALIN
  14. TESTOSTERONE. [Concomitant]
     Active Substance: TESTOSTERONE
  15. HYDRALAZINE [Concomitant]
     Active Substance: HYDRALAZINE HYDROCHLORIDE
  16. CLONIDINE. [Concomitant]
     Active Substance: CLONIDINE
  17. DEXAMETHASONE. [Concomitant]
     Active Substance: DEXAMETHASONE
  18. PROPOFOL. [Concomitant]
     Active Substance: PROPOFOL
  19. CYMBALTA [Concomitant]
     Active Substance: DULOXETINE HYDROCHLORIDE
  20. PROMETHAZINE [Concomitant]
     Active Substance: PROMETHAZINE HYDROCHLORIDE
  21. SENNA [Concomitant]
     Active Substance: SENNA LEAF\SENNOSIDES\SENNOSIDES A AND B
  22. BUPROPION. [Concomitant]
     Active Substance: BUPROPION
  23. PRILOSEC [Suspect]
     Active Substance: OMEPRAZOLE MAGNESIUM
     Route: 048
     Dates: start: 199201, end: 201812
  24. PREVACID 24 HR [Suspect]
     Active Substance: LANSOPRAZOLE
     Route: 065
     Dates: start: 199201, end: 201812
  25. PROTONIX [Suspect]
     Active Substance: PANTOPRAZOLE SODIUM
     Route: 065
     Dates: start: 199201, end: 201812
  26. NORVASC [Concomitant]
     Active Substance: AMLODIPINE BESYLATE
  27. CEPHAZOLIN [Concomitant]
     Active Substance: CEFAZOLIN
  28. DOXYCYCLINE. [Concomitant]
     Active Substance: DOXYCYCLINE
  29. PRILOSEC OTC [Suspect]
     Active Substance: OMEPRAZOLE MAGNESIUM
     Route: 048
     Dates: start: 199201, end: 201812
  30. ALLOPURINOL. [Concomitant]
     Active Substance: ALLOPURINOL
  31. UROXATRAL [Concomitant]
     Active Substance: ALFUZOSIN HYDROCHLORIDE
  32. SEVELAMER [Concomitant]
     Active Substance: SEVELAMER
  33. MORPHINE [Concomitant]
     Active Substance: MORPHINE
  34. CEPACOL [Concomitant]
     Active Substance: BENZOCAINE
  35. FENTANYL. [Concomitant]
     Active Substance: FENTANYL
  36. VERSED [Concomitant]
     Active Substance: MIDAZOLAM HYDROCHLORIDE
  37. CINACALCET. [Concomitant]
     Active Substance: CINACALCET
  38. DOCUSATE SODIUM. [Concomitant]
     Active Substance: DOCUSATE SODIUM
  39. REGLAN [Concomitant]
     Active Substance: METOCLOPRAMIDE HYDROCHLORIDE
  40. LORAZEPAM. [Concomitant]
     Active Substance: LORAZEPAM
  41. ONDASETRON [Concomitant]
     Active Substance: ONDANSETRON
  42. VARENICLINE [Concomitant]
     Active Substance: VARENICLINE
  43. ROCURONIUM [Concomitant]
     Active Substance: ROCURONIUM BROMIDE

REACTIONS (8)
  - Chronic kidney disease [Unknown]
  - Nephrogenic anaemia [Unknown]
  - Hyperparathyroidism secondary [Unknown]
  - Renal failure [Unknown]
  - End stage renal disease [Unknown]
  - Acute kidney injury [Unknown]
  - Electrolyte imbalance [Unknown]
  - Hyperkalaemia [Unknown]

NARRATIVE: CASE EVENT DATE: 20081116
